FAERS Safety Report 13332930 (Version 1)
Quarter: 2017Q1

REPORT INFORMATION
  Report Type: Spontaneous
  Country: US (occurrence: US)
  Receive Date: 20170314
  Receipt Date: 20170314
  Transmission Date: 20170428
  Serious: No
  Sender: FDA-Public Use
  Company Number: US-PFIZER INC-2017110662

PATIENT
  Sex: Female

DRUGS (1)
  1. ADVIL MENSTRUAL PAIN [Suspect]
     Active Substance: IBUPROFEN SODIUM
     Indication: MUSCLE SPASMS
     Dosage: 3 DF, UNK ^3 PILLS AT A TIME^

REACTIONS (2)
  - Drug effect delayed [Unknown]
  - Intentional product use issue [Unknown]
